FAERS Safety Report 9225733 (Version 2)
Quarter: 2013Q2

REPORT INFORMATION
  Report Type: Spontaneous
  Country: US (occurrence: US)
  Receive Date: 20130411
  Receipt Date: 20130610
  Transmission Date: 20140414
  Serious: Yes (Hospitalization, Other)
  Sender: FDA-Public Use
  Company Number: US-ELI_LILLY_AND_COMPANY-US201304001358

PATIENT
  Age: 37 Year
  Sex: Female
  Weight: 117.91 kg

DRUGS (7)
  1. HUMULIN REGULAR [Suspect]
     Indication: TYPE 1 DIABETES MELLITUS
     Dosage: UNK UNK, PRN
     Route: 058
     Dates: start: 2010, end: 2011
  2. HUMULIN REGULAR [Suspect]
     Dosage: 15 U, BID
     Dates: start: 201207
  3. METFORMIN [Concomitant]
  4. LISINOPRIL [Concomitant]
  5. LOVAZA [Concomitant]
  6. FENOFIBRIC ACID [Concomitant]
  7. KLONOPIN [Concomitant]

REACTIONS (5)
  - Diabetic ketoacidotic hyperglycaemic coma [Recovered/Resolved]
  - Diplopia [Unknown]
  - Diabetic neuropathy [Unknown]
  - Glycosylated haemoglobin increased [Unknown]
  - Wrong technique in drug usage process [Recovered/Resolved]
